FAERS Safety Report 9799339 (Version 1)
Quarter: 2014Q1

REPORT INFORMATION
  Report Type: Spontaneous
  Country: US (occurrence: US)
  Receive Date: 20140106
  Receipt Date: 20140106
  Transmission Date: 20141002
  Serious: Yes (Hospitalization, Other)
  Sender: FDA-Public Use
  Company Number: US-BAYER-2014-001519

PATIENT
  Age: 65 Year
  Sex: Male

DRUGS (15)
  1. XARELTO [Suspect]
     Indication: KNEE ARTHROPLASTY
     Dosage: UNK
     Route: 048
     Dates: start: 20131024, end: 20131123
  2. XARELTO [Suspect]
     Indication: THROMBOSIS PROPHYLAXIS
  3. ACETYLSALICYLIC ACID({=100 MG) [Suspect]
     Indication: CARDIOVASCULAR EVENT PROPHYLAXIS
     Route: 065
  4. GLIMEPIRIDE [Suspect]
     Indication: TYPE 2 DIABETES MELLITUS
     Dosage: 4 MG, QD
     Route: 048
  5. CELEBREX [Suspect]
     Indication: ARTHRITIS
     Route: 065
  6. ANCEF [Concomitant]
     Indication: INFECTION PROPHYLAXIS
     Route: 065
  7. LYRICA [Concomitant]
     Indication: NEURALGIA
     Route: 065
  8. QUINAPRIL HYDROCHLORIDE [Concomitant]
     Indication: HYPERTENSION
     Route: 065
  9. ASACOL [Concomitant]
     Indication: CROHN^S DISEASE
     Route: 065
  10. HYDROMORPHONE HCL [Concomitant]
     Indication: BACK PAIN
     Route: 065
     Dates: start: 20131023, end: 20131031
  11. HYDROMORPHONE HCL [Concomitant]
     Indication: PROCEDURAL PAIN
     Route: 065
  12. PERCOCET [Concomitant]
     Indication: PROCEDURAL PAIN
     Route: 065
     Dates: start: 20131024, end: 20131031
  13. ZOFRAN [Concomitant]
     Indication: NAUSEA
     Route: 065
     Dates: start: 20131020, end: 20131031
  14. ROPIVACAINE HYDROCHLORIDE [Concomitant]
     Indication: PROCEDURAL PAIN
     Route: 065
     Dates: start: 20131023, end: 20131025
  15. DILAUDID [Concomitant]
     Indication: PROCEDURAL PAIN
     Route: 065
     Dates: start: 20131031

REACTIONS (1)
  - Gastric ulcer haemorrhage [Recovered/Resolved]
